FAERS Safety Report 6492691-9 (Version None)
Quarter: 2009Q4

REPORT INFORMATION
  Report Type: 
  Country: None (occurrence: None)
  Receive Date: 20091211
  Receipt Date: 20091211
  Transmission Date: 20100525
  Serious: No
  Sender: FDA-Public Use
  Company Number: None

PATIENT
  Sex: Female

DRUGS (1)
  1. ZOLOFT [Suspect]
     Indication: DEPRESSION
     Dosage: QD PO
     Route: 048
     Dates: start: 20090101

REACTIONS (2)
  - DRUG INEFFECTIVE [None]
  - NAUSEA [None]
